FAERS Safety Report 7406948-8 (Version None)
Quarter: 2011Q2

REPORT INFORMATION
  Report Type: 
  Country: None (occurrence: None)
  Receive Date: 20110411
  Receipt Date: 20110405
  Transmission Date: 20111010
  Serious: Yes (Other)
  Sender: FDA-Public Use
  Company Number: US-PFIZER INC-2011055349

PATIENT
  Sex: Female

DRUGS (4)
  1. PERCOCET [Concomitant]
  2. KEFLEX [Concomitant]
  3. LYRICA [Suspect]
     Indication: POSTOPERATIVE CARE
     Dosage: 75 MG, 2X/DAY
     Route: 048
  4. CELEBREX [Concomitant]

REACTIONS (1)
  - SUICIDAL IDEATION [None]
